FAERS Safety Report 24913918 (Version 1)
Quarter: 2025Q1

REPORT INFORMATION
  Report Type: Spontaneous
  Country: TR (occurrence: TR)
  Receive Date: 20250202
  Receipt Date: 20250202
  Transmission Date: 20250409
  Serious: Yes (Other)
  Sender: ORGANON
  Company Number: TR-ORGANON-O2501TUR002634

PATIENT
  Sex: Female

DRUGS (1)
  1. NEXPLANON [Suspect]
     Active Substance: ETONOGESTREL
     Route: 059

REACTIONS (1)
  - Vaginal haemorrhage [Unknown]
